FAERS Safety Report 8370251-2 (Version None)
Quarter: 2012Q1

REPORT INFORMATION
  Report Type: 
  Country: None (occurrence: None)
  Receive Date: 20120323
  Receipt Date: 20110808
  Transmission Date: 20120608
  Serious: Yes (Other)
  Sender: FDA-Public Use
  Company Number: 163-21880-11081119

PATIENT
  Age: 77 Year
  Sex: Male

DRUGS (5)
  1. CARVEDILOL [Concomitant]
  2. TORSEMIDE [Concomitant]
  3. REVLIMID [Suspect]
     Indication: MULTIPLE MYELOMA
     Dosage: 10 MG, QD X 21 DAYS/OFF 7 DAYS, PO
     Route: 048
     Dates: start: 20110718, end: 20110801
  4. DIOVAN [Concomitant]
  5. VELCADE [Concomitant]

REACTIONS (1)
  - SYNCOPE [None]
